FAERS Safety Report 6553467-7 (Version None)
Quarter: 2010Q1

REPORT INFORMATION
  Report Type: 
  Country: None (occurrence: None)
  Receive Date: 20100127
  Receipt Date: 20100114
  Transmission Date: 20100710
  Serious: Yes (Other)
  Sender: FDA-Public Use
  Company Number: US-ELI_LILLY_AND_COMPANY-US200608004793

PATIENT
  Sex: Male
  Weight: 93.424 kg

DRUGS (42)
  1. FORTEO [Suspect]
     Indication: OSTEOPOROSIS
     Dosage: 20 UG, DAILY (1/D)
     Route: 058
     Dates: start: 20060201, end: 20080101
  2. HUMALOG [Suspect]
     Indication: DIABETES MELLITUS
     Dosage: UNK, UNK
     Route: 058
  3. MULTI-VITAMINS [Concomitant]
     Dosage: UNK, UNK
     Route: 048
  4. ANDRODERM [Concomitant]
     Dosage: 24.3 UNK, DAILY (1/D)
  5. ANDROGEL [Concomitant]
     Dosage: 1 %, UNK
  6. PROPANTHELINE [Concomitant]
     Dosage: 15 MG, 2/D
  7. METFORMIN HCL [Concomitant]
     Dosage: 850 MG, DAILY (1/D)
  8. SYNTHROID [Concomitant]
     Dosage: 0.15 MG, DAILY (1/D)
  9. LIPITOR [Concomitant]
     Dosage: 40 MG, DAILY (1/D)
  10. AVAPRO [Concomitant]
     Dosage: 150 MG, 2/D
  11. DITROPAN /USA/ [Concomitant]
     Dosage: 10 MG, DAILY (1/D)
  12. MIACALCIN [Concomitant]
     Dosage: 7 ML, DAILY (1/D)
  13. MAGNESIUM [Concomitant]
     Dosage: 250 MG, DAILY (1/D)
  14. CALCIUM AND ERGOCALCIFEROL [Concomitant]
     Dosage: 500 MG, 2/D
  15. GLUCOSAMINE HYDROCHLORIDE [Concomitant]
     Dosage: 1500 MG, 2/D
  16. CHONDROITIN SULFATE [Concomitant]
     Dosage: 1200 MG, 2/D
  17. FISH OIL [Concomitant]
     Dosage: 1000 MG, 2/D
  18. LOVAZA [Concomitant]
     Dosage: 300 MG, 2/D
  19. VITAMIN C [Concomitant]
     Dosage: 500 MG, 2/D
  20. ASPIRIN [Concomitant]
     Dosage: 81 MG, DAILY (1/D)
  21. COENZYME Q10 [Concomitant]
     Dosage: 150 MG, DAILY (1/D)
  22. VITAMIN A [Concomitant]
     Dosage: 5000 IU, DAILY (1/D)
  23. VITAMIN K TAB [Concomitant]
     Dosage: 10 UG, DAILY (1/D)
  24. VITAMIN E [Concomitant]
     Dosage: 445 IU, DAILY (1/D)
  25. THIAMINE HCL [Concomitant]
     Dosage: 1.5 MG, DAILY (1/D)
  26. RIBOFLAVIN TAB [Concomitant]
     Dosage: 1.7 MG, DAILY (1/D)
  27. NIACIN [Concomitant]
     Dosage: 20 MG, DAILY (1/D)
  28. VITAMIN B6 [Concomitant]
     Dosage: 3 MG, DAILY (1/D)
  29. FOLIC ACID [Concomitant]
     Dosage: 800 UG, DAILY (1/D)
  30. VITAMIN B-12 [Concomitant]
     Dosage: 25 UG, DAILY (1/D)
  31. BIOTIN [Concomitant]
     Dosage: 30 UG, DAILY (1/D)
  32. PANTOTHENIC ACID [Concomitant]
     Dosage: 10 MG, DAILY (1/D)
  33. PHOSPHORUS [Concomitant]
     Dosage: 48 MG, DAILY (1/D)
  34. IODINE [Concomitant]
     Dosage: 150 MG, DAILY (1/D)
  35. ZINC [Concomitant]
     Dosage: 15 MG, DAILY (1/D)
  36. SELENIUM [Concomitant]
     Dosage: 220 UG, DAILY (1/D)
  37. COPPER [Concomitant]
     Dosage: 2 MG, DAILY (1/D)
  38. MANGANESE [Concomitant]
     Dosage: 2 MG, DAILY (1/D)
  39. CHROMIUM [Concomitant]
     Dosage: 350 UG, DAILY (1/D)
  40. POTASSIUM [Concomitant]
     Dosage: 80 MG, DAILY (1/D)
  41. ALPHA LIPOIC ACID [Concomitant]
     Dosage: 50 MG, DAILY (1/D)
  42. FLAXSEED OIL [Concomitant]
     Dosage: 100 MG, UNK

REACTIONS (6)
  - ARTHRALGIA [None]
  - BLOOD GLUCOSE INCREASED [None]
  - GLOMERULAR FILTRATION RATE DECREASED [None]
  - HIP FRACTURE [None]
  - INTERVERTEBRAL DISC DEGENERATION [None]
  - PUBIS FRACTURE [None]
